FAERS Safety Report 13525435 (Version 1)
Quarter: 2017Q2

REPORT INFORMATION
  Report Type: Spontaneous
  Country: US (occurrence: US)
  Receive Date: 20170508
  Receipt Date: 20170508
  Transmission Date: 20170830
  Serious: No
  Sender: FDA-Public Use
  Company Number: US-ROCHE-1004329

PATIENT
  Age: 70 Year
  Sex: Female
  Weight: 81.4 kg

DRUGS (5)
  1. AVASTIN [Suspect]
     Active Substance: BEVACIZUMAB
     Indication: COLORECTAL CANCER
     Route: 065
  2. IRINOTECAN [Concomitant]
     Active Substance: IRINOTECAN
     Route: 065
  3. 5-FU [Concomitant]
     Active Substance: FLUOROURACIL
     Route: 065
  4. LEVOLEUCOVORIN. [Concomitant]
     Active Substance: LEVOLEUCOVORIN
     Route: 065
  5. 5-FU [Concomitant]
     Active Substance: FLUOROURACIL
     Route: 065

REACTIONS (2)
  - Chest pain [Unknown]
  - Extravasation [Unknown]

NARRATIVE: CASE EVENT DATE: 20110921
